FAERS Safety Report 24000669 (Version 1)
Quarter: 2024Q2

REPORT INFORMATION
  Report Type: Spontaneous
  Country: IR (occurrence: IR)
  Receive Date: 20240621
  Receipt Date: 20240621
  Transmission Date: 20240715
  Serious: Yes (Other)
  Sender: FDA-Public Use
  Company Number: IR-GUERBET/IRAN-IR-20240003

PATIENT
  Age: 35 Year
  Sex: Female

DRUGS (1)
  1. DOTAREM [Suspect]
     Active Substance: GADOTERATE MEGLUMINE
     Indication: Magnetic resonance imaging head
     Route: 042

REACTIONS (2)
  - Dysphonia [Recovered/Resolved]
  - Pruritus [Recovered/Resolved]
